FAERS Safety Report 6471606-3 (Version None)
Quarter: 2009Q4

REPORT INFORMATION
  Report Type: 
  Country: None (occurrence: None)
  Receive Date: 20091203
  Receipt Date: 20080319
  Transmission Date: 20100525
  Serious: Yes (Disabling)
  Sender: FDA-Public Use
  Company Number: TR-ELI_LILLY_AND_COMPANY-TR200803004718

PATIENT
  Sex: Male
  Weight: 52 kg

DRUGS (2)
  1. HUMULIN 70/30 [Suspect]
     Indication: TYPE 1 DIABETES MELLITUS
     Dosage: 20 U, EACH MORNING
     Route: 058
     Dates: start: 19920101
  2. HUMULIN 70/30 [Suspect]
     Dosage: 30 U, EACH EVENING
     Route: 058
     Dates: start: 19920101

REACTIONS (2)
  - BLINDNESS [None]
  - BLOOD GLUCOSE FLUCTUATION [None]
